FAERS Safety Report 26151381 (Version 1)
Quarter: 2025Q4

REPORT INFORMATION
  Report Type: Spontaneous
  Country: US (occurrence: None)
  Receive Date: 20251212
  Receipt Date: 20251212
  Transmission Date: 20260117
  Serious: No
  Sender: APOTEX
  Company Number: US-APOTEX-2025AP033251

PATIENT
  Sex: Female

DRUGS (2)
  1. BUPROPION [Suspect]
     Active Substance: BUPROPION
     Indication: Menopausal symptoms
     Dosage: 150 MILLIGRAM, BID
  2. FLUOXETINE [Suspect]
     Active Substance: FLUOXETINE HYDROCHLORIDE
     Indication: Menopausal symptoms
     Dosage: 125 MILLIGRAM, QD

REACTIONS (1)
  - Hypersexuality [Recovered/Resolved]
